FAERS Safety Report 23369854 (Version 1)
Quarter: 2024Q1

REPORT INFORMATION
  Report Type: Other
  Country: IL (occurrence: None)
  Receive Date: 20240105
  Receipt Date: 20240105
  Transmission Date: 20240410
  Serious: Yes (Other)
  Sender: FDA-Public Use
  Company Number: IL-ROCHE-3484211

PATIENT

DRUGS (6)
  1. RITUXIMAB [Suspect]
     Active Substance: RITUXIMAB
     Indication: Follicular lymphoma refractory
     Route: 065
  2. BENDAMUSTINE [Suspect]
     Active Substance: BENDAMUSTINE
     Indication: Follicular lymphoma refractory
     Route: 065
  3. FLUDARABINE [Suspect]
     Active Substance: FLUDARABINE PHOSPHATE
     Indication: Follicular lymphoma refractory
     Dosage: DAYS -4 TO -2)
     Route: 042
  4. CYCLOPHOSPHAMIDE [Suspect]
     Active Substance: CYCLOPHOSPHAMIDE
     Indication: Follicular lymphoma refractory
     Dosage: ONCE (DAY -2), FOLLOWED BY INFUSION OF 1X10^6 CAR T CELLS PER KG RECIPIENT IN THE INPATIENT SETTING
     Route: 042
  5. SULFAMETHOXAZOLE\TRIMETHOPRIM [Suspect]
     Active Substance: SULFAMETHOXAZOLE\TRIMETHOPRIM
     Indication: Follicular lymphoma refractory
     Route: 065
  6. ACYCLOVIR [Suspect]
     Active Substance: ACYCLOVIR
     Indication: Follicular lymphoma refractory
     Route: 065

REACTIONS (16)
  - Cytokine release syndrome [Unknown]
  - Immune effector cell-associated neurotoxicity syndrome [Unknown]
  - Atrial fibrillation [Unknown]
  - Vascular access complication [Unknown]
  - Febrile neutropenia [Unknown]
  - Escherichia sepsis [Unknown]
  - Pneumonia pseudomonal [Unknown]
  - Anaemia [Unknown]
  - Chest pain [Unknown]
  - Neutropenia [Unknown]
  - Thrombocytopenia [Unknown]
  - Hypogammaglobulinaemia [Unknown]
  - Infection [Unknown]
  - COVID-19 [Unknown]
  - Cytomegalovirus infection reactivation [Unknown]
  - Viral infection [Unknown]
